FAERS Safety Report 14755364 (Version 2)
Quarter: 2018Q2

REPORT INFORMATION
  Report Type: Report from Study
  Country: EG (occurrence: EG)
  Receive Date: 20180413
  Receipt Date: 20180420
  Transmission Date: 20180711
  Serious: Yes (Disabling, Other)
  Sender: FDA-Public Use
  Company Number: EG-ROCHE-2104785

PATIENT
  Age: 60 Year
  Sex: Female

DRUGS (2)
  1. INSULIN [Concomitant]
     Active Substance: INSULIN NOS
     Indication: PRODUCT USED FOR UNKNOWN INDICATION
     Dosage: UNK
     Route: 065
  2. LUCENTIS [Suspect]
     Active Substance: RANIBIZUMAB
     Indication: MACULAR OEDEMA
     Dosage: RIGHT EYE
     Route: 065

REACTIONS (8)
  - Speech disorder [Unknown]
  - Gait disturbance [Unknown]
  - Cerebrovascular accident [Not Recovered/Not Resolved]
  - Lacrimation increased [Unknown]
  - Retinal haemorrhage [Unknown]
  - Arterial occlusive disease [Unknown]
  - Thrombosis [Not Recovered/Not Resolved]
  - Lacrimal disorder [Unknown]

NARRATIVE: CASE EVENT DATE: 2017
